FAERS Safety Report 5397912-1 (Version None)
Quarter: 2007Q3

REPORT INFORMATION
  Report Type: 
  Country: None (occurrence: None)
  Receive Date: 20070726
  Receipt Date: 20070720
  Transmission Date: 20080115
  Serious: Yes (Other)
  Sender: FDA-Public Use
  Company Number: BE-BAYER-200713994GDS

PATIENT
  Age: 75 Year
  Sex: Male

DRUGS (3)
  1. NEXAVAR [Suspect]
     Indication: RENAL CELL CARCINOMA STAGE UNSPECIFIED
     Dosage: TOTAL DAILY DOSE: 800 MG
     Route: 048
  2. NEXAVAR [Suspect]
     Dosage: TOTAL DAILY DOSE: 400 MG
     Route: 048
  3. NEXAVAR [Suspect]
     Dosage: TOTAL DAILY DOSE: 800 MG
     Route: 048

REACTIONS (3)
  - PANCREATITIS [None]
  - THROMBOCYTOPENIA [None]
  - VENA CAVA THROMBOSIS [None]
